FAERS Safety Report 20651309 (Version 3)
Quarter: 2022Q2

REPORT INFORMATION
  Report Type: Spontaneous
  Country: US (occurrence: US)
  Receive Date: 20220329
  Receipt Date: 20220502
  Transmission Date: 20220721
  Serious: No
  Sender: FDA-Public Use
  Company Number: US-JNJFOC-20220356852

PATIENT
  Age: 82 Year
  Sex: Male

DRUGS (22)
  1. ERLEADA [Suspect]
     Active Substance: APALUTAMIDE
     Indication: Product used for unknown indication
     Dosage: 4*60 MG TABLET
     Route: 048
     Dates: start: 20210716, end: 20211028
  2. KEYTRUDA [Concomitant]
     Active Substance: PEMBROLIZUMAB
     Indication: Malignant melanoma
     Route: 065
     Dates: start: 20210415, end: 20211115
  3. TRINTELLIX [Concomitant]
     Active Substance: VORTIOXETINE HYDROBROMIDE
     Indication: Depression
  4. AMLODIPINE [Concomitant]
     Active Substance: AMLODIPINE BESYLATE
     Route: 065
  5. CARVEDILOL [Concomitant]
     Active Substance: CARVEDILOL
     Route: 065
  6. CRESTOR [Concomitant]
     Active Substance: ROSUVASTATIN CALCIUM
     Route: 065
  7. TAMSULOSIN [Concomitant]
     Active Substance: TAMSULOSIN
     Route: 065
  8. IMDUR [Concomitant]
     Active Substance: ISOSORBIDE MONONITRATE
     Route: 065
  9. LEVOTHYROXINE [Concomitant]
     Active Substance: LEVOTHYROXINE
     Indication: Thyroid disorder
     Route: 065
  10. ZOLADEX [Concomitant]
     Active Substance: GOSERELIN ACETATE
     Indication: Prostate cancer
     Route: 065
     Dates: start: 20190712
  11. ASPIRIN [Concomitant]
     Active Substance: ASPIRIN
     Route: 065
  12. QUNOL LIQUID COQ10 [Concomitant]
     Route: 065
  13. DULCOLAX (BISACODYL) [Concomitant]
     Active Substance: BISACODYL
     Route: 065
  14. DIPHENHYDRAMINE HYDROCHLORIDE [Concomitant]
     Active Substance: DIPHENHYDRAMINE HYDROCHLORIDE
     Route: 065
  15. BUPROPION [Concomitant]
     Active Substance: BUPROPION
     Route: 065
     Dates: end: 20210510
  16. ZOLOFT [Concomitant]
     Active Substance: SERTRALINE HYDROCHLORIDE
     Route: 065
     Dates: start: 20210604, end: 202109
  17. ZINC CARNOSINE [Concomitant]
     Route: 065
  18. OMEGA 3 FISH OIL [FISH OIL] [Concomitant]
     Route: 065
  19. VITAMIND3 VICOTRAT [Concomitant]
     Route: 065
  20. SUPER B COMPLEX [VITAMIN B COMPLEX] [Concomitant]
     Route: 065
  21. IRON [Concomitant]
     Active Substance: IRON
     Route: 065
  22. COVID-19 VACCINE [Concomitant]
     Route: 065
     Dates: start: 20210108, end: 20210801

REACTIONS (4)
  - Headache [Recovered/Resolved]
  - Fatigue [Recovered/Resolved]
  - Rash [Recovered/Resolved]
  - Decreased interest [Recovered/Resolved]
